FAERS Safety Report 24613252 (Version 1)
Quarter: 2024Q4

REPORT INFORMATION
  Report Type: Spontaneous
  Country: US (occurrence: US)
  Receive Date: 20241113
  Receipt Date: 20241113
  Transmission Date: 20250115
  Serious: No
  Sender: JOHNSON AND JOHNSON
  Company Number: US-JNJFOC-20241105232

PATIENT
  Age: 11 Year
  Sex: Male

DRUGS (4)
  1. RISPERDAL [Suspect]
     Active Substance: RISPERIDONE
     Indication: Affective disorder
     Dosage: VARYING DOSES OF 0.25 MG, 0.5 AND 1 MG WITH VARYING FREQUENCY OF ONCE, TWICE AND THRCIE DAILY
     Route: 048
     Dates: start: 20110103
  2. RISPERDAL [Suspect]
     Active Substance: RISPERIDONE
     Indication: Decreased appetite
  3. RISPERDAL [Suspect]
     Active Substance: RISPERIDONE
     Indication: Sedation
  4. RISPERDAL [Suspect]
     Active Substance: RISPERIDONE
     Indication: Anger

REACTIONS (3)
  - Overweight [Unknown]
  - Increased appetite [Unknown]
  - Off label use [Unknown]

NARRATIVE: CASE EVENT DATE: 20110103
